FAERS Safety Report 18968164 (Version 2)
Quarter: 2022Q1

REPORT INFORMATION
  Report Type: Report from Study
  Country: CH (occurrence: CH)
  Receive Date: 20210304
  Receipt Date: 20220208
  Transmission Date: 20220424
  Serious: Yes (Life-Threatening, Other)
  Sender: FDA-Public Use
  Company Number: CH-PFIZER INC-2021227954

PATIENT
  Age: 17 Year

DRUGS (1)
  1. SIROLIMUS [Suspect]
     Active Substance: SIROLIMUS
     Indication: Vascular malformation
     Dosage: 2X3 MG

REACTIONS (3)
  - Osteomyelitis [Recovered/Resolved]
  - Lymphangitis [Recovered/Resolved]
  - Sepsis [Recovered/Resolved]
